FAERS Safety Report 6538605-4 (Version None)
Quarter: 2010Q1

REPORT INFORMATION
  Report Type: 
  Country: None (occurrence: None)
  Receive Date: 20100113
  Receipt Date: 20100113
  Transmission Date: 20100710
  Serious: No
  Sender: FDA-Public Use
  Company Number: None

PATIENT
  Age: 59 Year
  Sex: Male
  Weight: 126 kg

DRUGS (13)
  1. LANTUS [Suspect]
     Indication: DIABETES MELLITUS
     Dosage: 55 UNITS QDAY SUBQ X1
     Route: 058
     Dates: start: 20091118
  2. ATIVAN [Concomitant]
  3. NORCO [Concomitant]
  4. PERCOCET [Concomitant]
  5. NORVASC [Concomitant]
  6. OMEPRAZOLE [Concomitant]
  7. SYNTHROID [Concomitant]
  8. M.V.I. [Concomitant]
  9. THIAMINE [Concomitant]
  10. ZOCOR [Concomitant]
  11. CREON [Concomitant]
  12. FOLIC ACI [Concomitant]
  13. NICODERM [Concomitant]

REACTIONS (1)
  - BLOOD GLUCOSE DECREASED [None]
